FAERS Safety Report 7132225-9 (Version None)
Quarter: 2010Q4

REPORT INFORMATION
  Report Type: 
  Country: None (occurrence: None)
  Receive Date: 20101130
  Receipt Date: 20101130
  Transmission Date: 20110411
  Serious: No
  Sender: FDA-Public Use
  Company Number: None

PATIENT
  Age: 67 Year
  Sex: Male
  Weight: 96.1626 kg

DRUGS (1)
  1. ZETIA [Suspect]
     Indication: BLOOD CHOLESTEROL INCREASED
     Dosage: 10 MG -ONE PABLET- ONCE A DAY PO
     Route: 048
     Dates: start: 20101029, end: 20101127

REACTIONS (3)
  - ANGINA PECTORIS [None]
  - MUCOSAL INFLAMMATION [None]
  - NASAL CONGESTION [None]
